FAERS Safety Report 4881202-7 (Version None)
Quarter: 2006Q1

REPORT INFORMATION
  Report Type: 
  Country: None (occurrence: None)
  Receive Date: 20060116
  Receipt Date: 20060105
  Transmission Date: 20060701
  Serious: Yes (Hospitalization, Other)
  Sender: FDA-Public Use
  Company Number: JP-NOVOPROD-249852

PATIENT
  Age: 61 Year
  Sex: Female

DRUGS (4)
  1. PENFILL N CHU [Suspect]
     Indication: DIABETES MELLITUS
     Dosage: 20 IU, QD
     Route: 058
  2. NOVOLOG [Concomitant]
     Dosage: 20 IU, QD
     Route: 058
  3. METFORMIN HCL [Concomitant]
     Dosage: 750 MG, QD
     Route: 048
  4. BASEN [Concomitant]
     Dosage: .9 MG, QD

REACTIONS (6)
  - BLOOD GLUCOSE FLUCTUATION [None]
  - BLOOD PRESSURE DECREASED [None]
  - KETOACIDOSIS [None]
  - MEDICAL DEVICE COMPLICATION [None]
  - MUSCLE SPASMS [None]
  - PAIN IN EXTREMITY [None]
